FAERS Safety Report 18749297 (Version 1)
Quarter: 2021Q1

REPORT INFORMATION
  Report Type: Report from Study
  Country: CA (occurrence: CA)
  Receive Date: 20210116
  Receipt Date: 20210116
  Transmission Date: 20210419
  Serious: Yes (Other)
  Sender: FDA-Public Use
  Company Number: CA-ACCORD-214391

PATIENT
  Sex: Male

DRUGS (4)
  1. ALLOPURINOL. [Concomitant]
     Active Substance: ALLOPURINOL
  2. DAPSONE. [Concomitant]
     Active Substance: DAPSONE
  3. DILTIAZEM. [Concomitant]
     Active Substance: DILTIAZEM
  4. MYCOPHENOLIC ACID. [Suspect]
     Active Substance: MYCOPHENOLIC ACID
     Indication: PEMPHIGOID
     Route: 065

REACTIONS (5)
  - Intentional product use issue [Unknown]
  - Idiopathic pulmonary fibrosis [Unknown]
  - Treatment failure [Unknown]
  - Off label use [Unknown]
  - Mouth ulceration [Unknown]
